FAERS Safety Report 6911094 (Version 2)
Quarter: 2020Q2

REPORT INFORMATION
  Report Type: Spontaneous
  Country: GB (occurrence: GB)
  Receive Date: 20090217
  Receipt Date: 20200610
  Transmission Date: 20200714
  Serious: Yes (Life-Threatening, Hospitalization, Other)
  Sender: FDA-Public Use
  Company Number: GB-PFIZER INC-2009166340

PATIENT
  Age: 37 Year
  Sex: Male

DRUGS (3)
  1. FLUCLOXACILLIN [Suspect]
     Active Substance: FLUCLOXACILLIN
     Indication: ABSCESS
     Dosage: UNK
     Route: 048
     Dates: start: 20090108
  2. CLINDAMYCIN HCL [Suspect]
     Active Substance: CLINDAMYCIN HYDROCHLORIDE
     Indication: ABSCESS
     Dosage: UNK
     Route: 048
     Dates: start: 20090108
  3. WARFARIN SODIUM. [Suspect]
     Active Substance: WARFARIN SODIUM
     Indication: DEEP VEIN THROMBOSIS
     Dosage: 4 MG, 1X/DAY
     Route: 048
     Dates: start: 200809, end: 20090116

REACTIONS (5)
  - Melaena [Unknown]
  - Coagulation time prolonged [Recovered/Resolved with Sequelae]
  - Subdural haematoma [Unknown]
  - Confusional state [Unknown]
  - Haematuria [Unknown]

NARRATIVE: CASE EVENT DATE: 20090116
